FAERS Safety Report 6563829-X (Version None)
Quarter: 2010Q1

REPORT INFORMATION
  Report Type: 
  Country: None (occurrence: None)
  Receive Date: 20100130
  Receipt Date: 20091222
  Transmission Date: 20100710
  Serious: No
  Sender: FDA-Public Use
  Company Number: US-ABBOTT-09P-163-0616641-00

PATIENT
  Sex: Male
  Weight: 96.702 kg

DRUGS (1)
  1. HUMIRA [Suspect]
     Indication: CROHN'S DISEASE
     Route: 058
     Dates: start: 20091001

REACTIONS (5)
  - ARRHYTHMIA [None]
  - BLEPHAROSPASM [None]
  - NASAL CONGESTION [None]
  - PARANASAL SINUS HYPERSECRETION [None]
  - SNEEZING [None]
